FAERS Safety Report 6031715-X (Version None)
Quarter: 2009Q1

REPORT INFORMATION
  Report Type: 
  Country: None (occurrence: None)
  Receive Date: 20090108
  Receipt Date: 20090106
  Transmission Date: 20090719
  Serious: Yes (Hospitalization)
  Sender: FDA-Public Use
  Company Number: B0551116A

PATIENT
  Age: 31 Year
  Sex: Female

DRUGS (8)
  1. DIGOXIN [Suspect]
     Indication: ATRIAL FIBRILLATION
     Route: 065
  2. PREDNISOLONE [Suspect]
     Indication: DRUG USE FOR UNKNOWN INDICATION
     Dosage: 40MG PER DAY
     Route: 065
  3. METRONIDAZOLE [Suspect]
     Indication: PROPHYLAXIS
     Route: 065
  4. PROPRANOLOL [Suspect]
     Dosage: 30MG PER DAY
     Route: 065
  5. CARBIMAZOLE [Suspect]
     Route: 065
  6. PROPYL-THIOURACIL [Suspect]
     Route: 065
  7. CEFADROXIL [Suspect]
     Indication: PROPHYLAXIS
     Route: 048
  8. ENOXAPARIN SODIUM [Suspect]
     Indication: THROMBOSIS PROPHYLAXIS
     Dosage: 40MG PER DAY
     Route: 065

REACTIONS (6)
  - DRUG EXPOSURE DURING PREGNANCY [None]
  - HEPATIC ENZYME ABNORMAL [None]
  - LEUKOPENIA [None]
  - NEUTROPENIA [None]
  - RASH [None]
  - THROMBOCYTOPENIA [None]
